FAERS Safety Report 19769897 (Version 1)
Quarter: 2021Q3

REPORT INFORMATION
  Report Type: Spontaneous
  Country: CN (occurrence: CN)
  Receive Date: 20210831
  Receipt Date: 20210831
  Transmission Date: 20211014
  Serious: Yes (Other)
  Sender: FDA-Public Use
  Company Number: CN-BAXTER-2021BAX026798

PATIENT
  Age: 7 Year
  Sex: Male
  Weight: 16.5 kg

DRUGS (2)
  1. ENDOXAN [Suspect]
     Active Substance: CYCLOPHOSPHAMIDE
     Indication: HENOCH-SCHONLEIN PURPURA NEPHRITIS
     Route: 041
     Dates: start: 20210618, end: 20210619
  2. ENDOXAN [Suspect]
     Active Substance: CYCLOPHOSPHAMIDE
     Dosage: DOSE RE?INTRODUCED
     Route: 041

REACTIONS (1)
  - Hypokalaemia [Recovered/Resolved]

NARRATIVE: CASE EVENT DATE: 20210706
